FAERS Safety Report 25489759 (Version 1)
Quarter: 2025Q2

REPORT INFORMATION
  Report Type: Spontaneous
  Country: FR (occurrence: FR)
  Receive Date: 20250627
  Receipt Date: 20250627
  Transmission Date: 20250717
  Serious: Yes (Hospitalization)
  Sender: MERCK SHARP & DOHME LLC
  Company Number: None

PATIENT
  Age: 45 Year
  Sex: Female

DRUGS (2)
  1. TEDIZOLID PHOSPHATE [Interacting]
     Active Substance: TEDIZOLID PHOSPHATE
     Indication: Osteitis
     Dosage: 200MG/DAY
     Route: 048
     Dates: start: 202504, end: 20250611
  2. METFORMIN PAMOATE [Interacting]
     Active Substance: METFORMIN PAMOATE
     Indication: Type 2 diabetes mellitus
     Dosage: 700MG/D
     Route: 048
     Dates: end: 20250606

REACTIONS (1)
  - Lactic acidosis [Not Recovered/Not Resolved]

NARRATIVE: CASE EVENT DATE: 20250611
